FAERS Safety Report 18853708 (Version 1)
Quarter: 2021Q1

REPORT INFORMATION
  Report Type: Spontaneous
  Country: US (occurrence: US)
  Receive Date: 20210205
  Receipt Date: 20210205
  Transmission Date: 20210420
  Serious: No
  Sender: FDA-Public Use
  Company Number: US-PFIZER INC-2021098881

PATIENT
  Age: 50 Year
  Sex: Female
  Weight: 90.7 kg

DRUGS (10)
  1. CYCLOBENZAPRINE HCL [Concomitant]
     Active Substance: CYCLOBENZAPRINE HYDROCHLORIDE
     Dosage: 100 % (100 % POWDER)
  2. GABAPENTIN. [Concomitant]
     Active Substance: GABAPENTIN
     Dosage: 100 % (100 % POWDER)
  3. VITAMIN B12 [Concomitant]
     Active Substance: CYANOCOBALAMIN
     Dosage: 2500 UG
  4. COMPAZINE [Concomitant]
     Active Substance: PROCHLORPERAZINE MALEATE
     Dosage: 10 MG
  5. IBUPROFEN. [Concomitant]
     Active Substance: IBUPROFEN
     Dosage: 100 % (100 % POWDER)
  6. OXYCONTIN [Concomitant]
     Active Substance: OXYCODONE HYDROCHLORIDE
     Dosage: 10 MG, 2X/DAY
  7. INLYTA [Suspect]
     Active Substance: AXITINIB
     Indication: RENAL CELL CARCINOMA
     Dosage: 5 MG, 2X/DAY (EVERY 12 HOURS)
     Route: 048
     Dates: start: 20210115
  8. BAVENCIO [Concomitant]
     Active Substance: AVELUMAB
     Dosage: UNK (200MG/10ML VIAL)
  9. OXYCODONE HYDROCHLORIDE. [Concomitant]
     Active Substance: OXYCODONE HYDROCHLORIDE
     Dosage: 10 MG
  10. CRESTOR [Concomitant]
     Active Substance: ROSUVASTATIN CALCIUM
     Dosage: 10 MG

REACTIONS (1)
  - Diarrhoea [Recovered/Resolved]
